FAERS Safety Report 7874675-9 (Version None)
Quarter: 2011Q4

REPORT INFORMATION
  Report Type: 
  Country: None (occurrence: None)
  Receive Date: 20111031
  Receipt Date: 20111026
  Transmission Date: 20120403
  Serious: Yes (Other)
  Sender: FDA-Public Use
  Company Number: AU-PFIZER INC-2011261552

PATIENT
  Sex: Female

DRUGS (3)
  1. ZOLOFT [Suspect]
     Indication: DEPRESSION
     Dosage: 25MG FOR THREE DAYS
     Dates: start: 20111001, end: 20111001
  2. ZOLOFT [Suspect]
     Indication: OBSESSIVE THOUGHTS
     Dosage: 50MG FOR THREE DAYS
     Dates: start: 20111001, end: 20111001
  3. ZOLOFT [Suspect]
     Dosage: 100MG FOR FIVE DAYS
     Dates: start: 20111001

REACTIONS (5)
  - ANXIETY [None]
  - DRUG INEFFECTIVE [None]
  - AGITATION [None]
  - HEAT RASH [None]
  - SUICIDAL IDEATION [None]
